FAERS Safety Report 7096994-9 (Version None)
Quarter: 2010Q4

REPORT INFORMATION
  Report Type: 
  Country: None (occurrence: None)
  Receive Date: 20101111
  Receipt Date: 20100419
  Transmission Date: 20110411
  Serious: No
  Sender: FDA-Public Use
  Company Number: US-KINGPHARMUSA00001-K201000473

PATIENT
  Age: 62 Year
  Sex: Male

DRUGS (2)
  1. EMBEDA [Suspect]
     Indication: PAIN
     Dosage: 30 MG, BID
     Route: 048
  2. EMBEDA [Suspect]
     Indication: NECK INJURY

REACTIONS (1)
  - HEADACHE [None]
